FAERS Safety Report 8318831-4 (Version None)
Quarter: 2012Q2

REPORT INFORMATION
  Report Type: 
  Country: None (occurrence: None)
  Receive Date: 20120427
  Receipt Date: 20120424
  Transmission Date: 20120825
  Serious: Yes (Other)
  Sender: FDA-Public Use
  Company Number: BR-PFIZER INC-2012102124

PATIENT
  Age: 48 Year
  Sex: Female

DRUGS (5)
  1. MULTI-VITAMINS [Concomitant]
     Dosage: UNK
  2. EFFEXOR XR [Suspect]
     Indication: POST-TRAUMATIC STRESS DISORDER
     Dosage: 75 MG, 1X/DAY
     Route: 048
     Dates: start: 20070101, end: 20070101
  3. LOVAZA [Concomitant]
     Dosage: 1 CAPSULE (UNKNOWN DOSE), DAILY
     Dates: start: 20070101
  4. VENLAFAXINE HCL [Suspect]
     Indication: POST-TRAUMATIC STRESS DISORDER
     Route: 048
  5. EFFEXOR XR [Suspect]
     Dosage: UNK

REACTIONS (2)
  - DEPRESSION [None]
  - BREAST CANCER [None]
